FAERS Safety Report 5321023-4 (Version None)
Quarter: 2007Q2

REPORT INFORMATION
  Report Type: 
  Country: None (occurrence: None)
  Receive Date: 20070215
  Receipt Date: 20061004
  Transmission Date: 20071010
  Serious: Yes (Hospitalization, Other)
  Sender: FDA-Public Use
  Company Number: 200615863BWH

PATIENT
  Age: 69 Year
  Sex: Male
  Weight: 76.2043 kg

DRUGS (22)
  1. NEXAVAR [Suspect]
     Indication: METASTASIS
     Dosage: 400 MG, BID, ORAL
     Route: 048
     Dates: start: 20061013
  2. NEXAVAR [Suspect]
     Indication: RENAL CELL CARCINOMA STAGE UNSPECIFIED
     Dosage: 400 MG, BID, ORAL
     Route: 048
     Dates: start: 20061013
  3. COUMADIN [Suspect]
  4. IBUPROFEN [Suspect]
  5. DIOVAN [Concomitant]
  6. NITROLINGUAL [Concomitant]
  7. PREVACID [Concomitant]
  8. TAGAMET [Concomitant]
  9. TOPROL-XL [Concomitant]
  10. ZOCOR [Concomitant]
  11. PLAVIX [Concomitant]
  12. XANAX [Concomitant]
  13. VITAMIN B [Concomitant]
  14. ASCORBIC ACID [Concomitant]
  15. GLUCOSAMINE CHONDROITIN [Concomitant]
  16. OMEGA 369 [Concomitant]
  17. MULTI-VITAMIN [Concomitant]
  18. CAISSE TEA [Concomitant]
  19. ASPIRIN [Concomitant]
  20. METROGEL [Concomitant]
  21. IMODIUM A-D [Concomitant]
  22. DIPHENOXYLATE/ATROPINE (DIPHENOXYLATE HYDROCHLORIDE) [Concomitant]

REACTIONS (12)
  - ALOPECIA [None]
  - BRONCHITIS [None]
  - DIARRHOEA [None]
  - EPISTAXIS [None]
  - ERYTHEMA [None]
  - FATIGUE [None]
  - FLATULENCE [None]
  - HAEMOPTYSIS [None]
  - MYOCARDIAL INFARCTION [None]
  - POSTNASAL DRIP [None]
  - RASH [None]
  - WEIGHT DECREASED [None]
